FAERS Safety Report 8561804-7 (Version None)
Quarter: 2012Q3

REPORT INFORMATION
  Report Type: 
  Country: None (occurrence: None)
  Receive Date: 20120802
  Receipt Date: 20120718
  Transmission Date: 20120928
  Serious: Yes (Other)
  Sender: FDA-Public Use
  Company Number: CHPA2012US016123

PATIENT
  Age: 86 Year
  Sex: Male

DRUGS (2)
  1. MYOFLEX ANALGESIC CREME [Suspect]
     Indication: MUSCLE SWELLING
     Dosage: ONCE A DAY
     Route: 061
  2. TYLENOL (CAPLET) [Concomitant]
     Dosage: UNK, QPM

REACTIONS (3)
  - OFF LABEL USE [None]
  - INCORRECT DRUG ADMINISTRATION DURATION [None]
  - DRUG DEPENDENCE [None]
